FAERS Safety Report 17502732 (Version 1)
Quarter: 2020Q1

REPORT INFORMATION
  Report Type: Spontaneous
  Country: US (occurrence: US)
  Receive Date: 20200305
  Receipt Date: 20200305
  Transmission Date: 20200409
  Serious: Yes (Death, Hospitalization)
  Sender: FDA-Public Use
  Company Number: US-TEVA-2020-US-1193594

PATIENT
  Age: 11 Month
  Sex: Female

DRUGS (1)
  1. NIFEDIPINE. [Suspect]
     Active Substance: NIFEDIPINE
     Route: 048

REACTIONS (6)
  - Accidental poisoning [Fatal]
  - Atrioventricular block [Unknown]
  - Vomiting [Not Recovered/Not Resolved]
  - Bradycardia [Unknown]
  - Gastric haemorrhage [Unknown]
  - Cardiac arrest [Unknown]
